FAERS Safety Report 24411011 (Version 1)
Quarter: 2024Q4

REPORT INFORMATION
  Report Type: Spontaneous
  Country: DE (occurrence: DE)
  Receive Date: 20241008
  Receipt Date: 20241008
  Transmission Date: 20250114
  Serious: Yes (Other)
  Sender: DEXCEL
  Company Number: None

PATIENT
  Age: 67 Year
  Sex: Female
  Weight: 84 kg

DRUGS (6)
  1. VENLAFAXINE HYDROCHLORIDE [Suspect]
     Active Substance: VENLAFAXINE HYDROCHLORIDE
     Indication: Depression
     Dosage: UP TO 75MG PLUS 37.5 MG
     Route: 048
     Dates: start: 20230101
  2. ASPIRIN [Concomitant]
     Active Substance: ASPIRIN
     Dosage: 0-1-0
  3. L-Thyroxin Aristo 75 Mikrogramm Tabletten [Concomitant]
     Dosage: 1-0-0
  4. Amlodipin Winthrop 5 mg Tabletten [Concomitant]
     Dosage: 0-1/2-1/2
  5. ATORVASTATIN [Concomitant]
     Active Substance: ATORVASTATIN
     Dosage: 0-0-1/2
  6. NEBIVOLOL [Concomitant]
     Active Substance: NEBIVOLOL
     Dosage: 1-0-0

REACTIONS (1)
  - Blood immunoglobulin G increased [Not Recovered/Not Resolved]

NARRATIVE: CASE EVENT DATE: 20230101
